APPROVED DRUG PRODUCT: DYANAVEL XR 5
Active Ingredient: AMPHETAMINE; AMPHETAMINE ASPARTATE/DEXTROAMPHETAMINE SULFATE
Strength: 4MG;EQ 1MG BASE
Dosage Form/Route: TABLET, EXTENDED RELEASE;ORAL
Application: N210526 | Product #001
Applicant: TRIS PHARMA INC
Approved: Nov 4, 2021 | RLD: Yes | RS: No | Type: RX

PATENTS:
Patent 11590081 | Expires: Sep 24, 2038
Patent 12458592 | Expires: Feb 11, 2040
Patent 9675704 | Expires: Mar 15, 2027
Patent 8337890 | Expires: Mar 15, 2027
Patent 8747902 | Expires: Mar 15, 2027